FAERS Safety Report 9183841 (Version 1)
Quarter: 2013Q1

REPORT INFORMATION
  Report Type: Spontaneous
  Country: US (occurrence: US)
  Receive Date: 20130322
  Receipt Date: 20130322
  Transmission Date: 20140127
  Serious: No
  Sender: FDA-Public Use
  Company Number: US-BRISTOL-MYERS SQUIBB COMPANY-16631392

PATIENT
  Age: 57 Year
  Sex: Female
  Weight: 72.56 kg

DRUGS (1)
  1. ERBITUX [Suspect]
     Dosage: INF:2?2ND INF ON 24-MAY-2012.
     Dates: start: 2012

REACTIONS (4)
  - Oropharyngeal pain [Recovering/Resolving]
  - Pharyngeal oedema [Recovering/Resolving]
  - Rash [Recovered/Resolved]
  - Swollen tongue [Recovering/Resolving]
